FAERS Safety Report 8991040 (Version 2)
Quarter: 2012Q4

REPORT INFORMATION
  Report Type: Spontaneous
  Country: US (occurrence: None)
  Receive Date: 20121220
  Receipt Date: 20121227
  Transmission Date: 20130627
  Serious: Yes (Death)
  Sender: FDA-Public Use
  Company Number: 2012-1312

PATIENT
  Age: 60 Year
  Sex: Female

DRUGS (1)
  1. KYPROLIS [Suspect]
     Indication: DRUG USE FOR UNKNOWN INDICATION

REACTIONS (5)
  - White blood cell count decreased [None]
  - Asthenia [None]
  - Red blood cell count decreased [None]
  - Decreased appetite [None]
  - Weight decreased [None]
